FAERS Safety Report 5918073-3 (Version None)
Quarter: 2008Q4

REPORT INFORMATION
  Report Type: 
  Country: None (occurrence: None)
  Receive Date: 20081014
  Receipt Date: 20081002
  Transmission Date: 20090506
  Serious: Yes (Other)
  Sender: FDA-Public Use
  Company Number: US-PFIZER INC-2008083877

PATIENT
  Sex: Male

DRUGS (7)
  1. NEURONTIN [Suspect]
     Dates: start: 20060101
  2. LISINOPRIL [Suspect]
     Dosage: DAILY DOSE:10MG
     Route: 048
     Dates: start: 20070123, end: 20080815
  3. ASPIRIN [Suspect]
     Dosage: DAILY DOSE:325MG
     Route: 048
     Dates: start: 20060301
  4. PLAVIX [Suspect]
     Indication: CEREBROVASCULAR ACCIDENT
     Dosage: DAILY DOSE:300MG
     Route: 048
     Dates: start: 20080611
  5. PLAVIX [Suspect]
     Dosage: DAILY DOSE:75MG
     Route: 048
     Dates: start: 20080611
  6. HYDROCHLOROTHIAZIDE [Concomitant]
     Dosage: TEXT:DOSE: 12.5MG
     Route: 048
     Dates: start: 20050301
  7. AGGRENOX [Concomitant]

REACTIONS (7)
  - ASTHENIA [None]
  - ATRIAL SEPTAL DEFECT [None]
  - CONFUSIONAL STATE [None]
  - DISORIENTATION [None]
  - FATIGUE [None]
  - HYPOTENSION [None]
  - VOMITING [None]
